FAERS Safety Report 4385066-X (Version None)
Quarter: 2004Q2

REPORT INFORMATION
  Report Type: 
  Country: None (occurrence: None)
  Receive Date: 20040625
  Receipt Date: 20030725
  Transmission Date: 20050107
  Serious: Yes (Other)
  Sender: FDA-Public Use
  Company Number: US-BRISTOL-MYERS SQUIBB COMPANY-12334561

PATIENT
  Age: 46 Year
  Sex: Female
  Weight: 146 kg

DRUGS (13)
  1. BMS188667 [Concomitant]
     Dosage: DOSE INCREASED FROM 750 MG TO 1000 MG ON 15-JUL-03, AND THEN DISCONTINUED.
     Route: 042
     Dates: start: 20010523, end: 20030715
  2. ENBREL [Suspect]
     Route: 058
     Dates: start: 20000730
  3. NORVASC [Concomitant]
     Dates: start: 20001115
  4. DEPAKOTE [Concomitant]
     Dates: start: 20000802
  5. MAXALT [Concomitant]
     Dates: start: 19980806
  6. KETOPROFEN [Concomitant]
     Dates: start: 20000501
  7. VICODIN [Concomitant]
     Dates: start: 19980714
  8. FLOVENT [Concomitant]
     Dates: start: 19990625
  9. VITAMIN E [Concomitant]
     Dates: start: 19980101
  10. GINKGO BILOBA [Concomitant]
     Dates: start: 19980101
  11. FOLIC ACID [Concomitant]
     Dates: start: 19960101
  12. ARTHOFLEX MAX [Concomitant]
     Dates: start: 20010308
  13. BEXTRA [Concomitant]

REACTIONS (1)
  - CERVIX CARCINOMA [None]
